FAERS Safety Report 18166371 (Version 1)
Quarter: 2020Q3

REPORT INFORMATION
  Report Type: Spontaneous
  Country: CA (occurrence: CA)
  Receive Date: 20200819
  Receipt Date: 20200819
  Transmission Date: 20201103
  Serious: Yes (Life-Threatening, Hospitalization)
  Sender: FDA-Public Use
  Company Number: CA-ACCORD-195835

PATIENT
  Age: 17 Year
  Sex: Female
  Weight: 56 kg

DRUGS (31)
  1. BLEOMYCIN [Suspect]
     Active Substance: BLEOMYCIN SULFATE
     Indication: PRODUCT USED FOR UNKNOWN INDICATION
     Route: 042
  2. DIPHENHYDRAMINE. [Concomitant]
     Active Substance: DIPHENHYDRAMINE
  3. ENOXAPARIN [Concomitant]
     Active Substance: ENOXAPARIN
  4. HYDROMORPHONE/HYDROMORPHONE HYDROCHLORIDE [Concomitant]
     Active Substance: HYDROMORPHONE
  5. NAPROXEN. [Concomitant]
     Active Substance: NAPROXEN
  6. MACROGOL [Concomitant]
     Active Substance: POLYETHYLENE GLYCOLS
  7. DIMENHYDRINATE. [Concomitant]
     Active Substance: DIMENHYDRINATE
     Dosage: LIQUID
  8. NORETHISTERONE [Concomitant]
     Active Substance: NORETHINDRONE
  9. ZINC. [Concomitant]
     Active Substance: ZINC
  10. ALLOPURINOL. [Concomitant]
     Active Substance: ALLOPURINOL
  11. CALCIUM [Concomitant]
     Active Substance: CALCIUM
  12. KETAMINE [Concomitant]
     Active Substance: KETAMINE
  13. METOCLOPRAMIDE. [Concomitant]
     Active Substance: METOCLOPRAMIDE
  14. RANITIDINE. [Concomitant]
     Active Substance: RANITIDINE
  15. CLONIDINE. [Concomitant]
     Active Substance: CLONIDINE
  16. ETOPOSIDE. [Suspect]
     Active Substance: ETOPOSIDE
     Indication: OVARIAN GERM CELL TERATOMA STAGE III
     Route: 042
  17. PREGABALIN. [Concomitant]
     Active Substance: PREGABALIN
  18. EMEND [Concomitant]
     Active Substance: APREPITANT
  19. FUROSEMIDE. [Concomitant]
     Active Substance: FUROSEMIDE
  20. MAGNESIUM [Concomitant]
     Active Substance: MAGNESIUM
  21. PANTOPRAZOLE [Concomitant]
     Active Substance: PANTOPRAZOLE
     Dosage: INTRAVENOUS
  22. CISPLATIN. [Suspect]
     Active Substance: CISPLATIN
     Indication: OVARIAN GERM CELL TERATOMA STAGE III
     Dosage: SOLUTION INTRAVENOUS
     Route: 042
  23. POTASSIUM CHLORIDE. [Concomitant]
     Active Substance: POTASSIUM CHLORIDE
  24. DEXAMETHASONE. [Concomitant]
     Active Substance: DEXAMETHASONE
     Dosage: LIQUID
     Route: 014
  25. GRANISETRON [Concomitant]
     Active Substance: GRANISETRON
  26. ONDANSETRON [Concomitant]
     Active Substance: ONDANSETRON
  27. SULFAMETHOXAZOLE/TRIMETHOPRIM [Concomitant]
     Active Substance: SULFAMETHOXAZOLE\TRIMETHOPRIM
  28. PARACETAMOL [Concomitant]
     Active Substance: ACETAMINOPHEN
  29. CETIRIZINE [Concomitant]
     Active Substance: CETIRIZINE HYDROCHLORIDE
  30. LORAZEPAM. [Concomitant]
     Active Substance: LORAZEPAM
  31. VANCOMYCIN [Concomitant]
     Active Substance: VANCOMYCIN

REACTIONS (3)
  - Febrile neutropenia [Recovered/Resolved]
  - Pancytopenia [Recovered/Resolved]
  - Transfusion [Unknown]
